FAERS Safety Report 10035031 (Version 1)
Quarter: 2014Q1

REPORT INFORMATION
  Report Type: Spontaneous
  Country: US (occurrence: None)
  Receive Date: 20140306
  Receipt Date: 20140306
  Transmission Date: 20141002
  Serious: Yes (Disabling)
  Sender: FDA-Public Use
  Company Number: 163-21880-13062764

PATIENT
  Age: 59 Year
  Sex: Male
  Weight: 70.3 kg

DRUGS (3)
  1. REVLIMID (LENALIDOMIDE) (10 MILLIGRAM, CAPSULES) [Suspect]
     Indication: PLASMA CELL MYELOMA
     Dosage: 10 MG, 1 IN 1 D, PO  SEP/2010- UNKNOWN  THERAPY DATES
     Route: 048
     Dates: start: 201009
  2. BORTEZOMIB (BORTEZOMIB) [Concomitant]
  3. DEXAMETHASONE (DEXAMETHASONE) [Concomitant]

REACTIONS (1)
  - Plasma cell myeloma [None]
